FAERS Safety Report 15376024 (Version 1)
Quarter: 2018Q4

REPORT INFORMATION
  Report Type: Spontaneous
  Country: US (occurrence: US)
  Receive Date: 20180912
  Receipt Date: 20180912
  Transmission Date: 20190204
  Serious: Yes (Other)
  Sender: FDA-Public Use
  Company Number: US-TEVA-2018-US-951918

PATIENT
  Sex: Female

DRUGS (1)
  1. CLONIPAT-A (CLONIDINE) [Suspect]
     Active Substance: CLONIDINE
     Indication: HYPERTENSION
     Route: 062
     Dates: start: 20180813

REACTIONS (5)
  - Feeling abnormal [Unknown]
  - Burning sensation [Unknown]
  - Blood pressure increased [Unknown]
  - Pruritus [Unknown]
  - Product adhesion issue [Unknown]
